FAERS Safety Report 9365777 (Version 1)
Quarter: 2013Q2

REPORT INFORMATION
  Report Type: Spontaneous
  Country: US (occurrence: US)
  Receive Date: 20130625
  Receipt Date: 20130625
  Transmission Date: 20140414
  Serious: Yes (Other)
  Sender: FDA-Public Use
  Company Number: US-BAYER-2013-077139

PATIENT
  Age: 62 Year
  Sex: Female

DRUGS (4)
  1. CIPROFLOXACIN [Suspect]
     Indication: DYSURIA
  2. CIPROFLOXACIN [Suspect]
     Indication: POLLAKIURIA
  3. CIPROFLOXACIN [Suspect]
     Indication: URINARY TRACT INFECTION BACTERIAL
  4. NITROFURANTOIN [Concomitant]
     Indication: URINARY TRACT INFECTION BACTERIAL
     Dosage: UNK

REACTIONS (2)
  - Clostridium difficile colitis [None]
  - Tendonitis [Recovered/Resolved]
